FAERS Safety Report 6708001-5 (Version None)
Quarter: 2010Q2

REPORT INFORMATION
  Report Type: 
  Country: None (occurrence: None)
  Receive Date: 20100503
  Receipt Date: 20090804
  Transmission Date: 20101027
  Serious: Yes (Other)
  Sender: FDA-Public Use
  Company Number: US-BAYER-200913047BCC

PATIENT
  Sex: Female

DRUGS (1)
  1. PHILLIPS MILK OF MAGNESIA LIQUID [Suspect]
     Indication: UNEVALUABLE EVENT
     Route: 048
     Dates: start: 20090705

REACTIONS (1)
  - INTESTINAL OBSTRUCTION [None]
